FAERS Safety Report 7406511-9 (Version None)
Quarter: 2011Q2

REPORT INFORMATION
  Report Type: 
  Country: None (occurrence: None)
  Receive Date: 20110411
  Receipt Date: 20110405
  Transmission Date: 20111010
  Serious: Yes (Death)
  Sender: FDA-Public Use
  Company Number: US-CELGENEUS-163-50794-11031917

PATIENT
  Sex: Male

DRUGS (1)
  1. VIDAZA [Suspect]
     Route: 051
     Dates: start: 20101018, end: 20110114

REACTIONS (3)
  - HAEMORRHAGE [None]
  - INFECTION [None]
  - NEOPLASM PROGRESSION [None]
